FAERS Safety Report 11916828 (Version 11)
Quarter: 2017Q2

REPORT INFORMATION
  Report Type: Spontaneous
  Country: US (occurrence: US)
  Receive Date: 20160114
  Receipt Date: 20170515
  Transmission Date: 20170829
  Serious: Yes (Other)
  Sender: FDA-Public Use
  Company Number: US-PFIZER INC-2015450553

PATIENT
  Age: 71 Year
  Sex: Female
  Weight: 70.3 kg

DRUGS (26)
  1. BISOPROLOL HCT [Concomitant]
     Active Substance: BISOPROLOL FUMARATE\HYDROCHLOROTHIAZIDE
     Dosage: UNK [BISOPROLOL FUMARATE 2.5 MG]/ [HYDROCHLOROTHIAZIDE: 6.25MG]
     Dates: start: 1980
  2. FENTANYL. [Concomitant]
     Active Substance: FENTANYL
     Dosage: 25 UG, UNK (25MCG/HR WEAR 72 HOURS)
     Dates: start: 20150825, end: 201701
  3. HYDROCODONE ACETAM [Concomitant]
     Indication: PELVIC PAIN
     Dosage: 1 DF, AS NEEDED
  4. IBRANCE [Suspect]
     Active Substance: PALBOCICLIB
     Dosage: 100 MG, CYCLIC (ONCE A DAY FOR 21 DAYS AND THEN 7 DAYS OFF)
     Route: 048
     Dates: start: 20151105
  5. PRAVASTATIN. [Concomitant]
     Active Substance: PRAVASTATIN
     Indication: BLOOD CHOLESTEROL
     Dosage: 20 MG, 1X/DAY
     Route: 048
  6. LETROZOLE. [Suspect]
     Active Substance: LETROZOLE
     Indication: BONE CANCER
     Dosage: 2.5 MG, CYCLIC (CHANGES EVERY 72 HOURS) (FOR 21 DAYS )
     Dates: start: 20151103
  7. BISOPROLOL HCT [Concomitant]
     Active Substance: BISOPROLOL FUMARATE\HYDROCHLOROTHIAZIDE
     Indication: HYPERTENSION
     Dosage: 1 DF, 1X/DAY (BISOPROLOL FUMARATE: 2.5 MG, HYDROCHLOROTHIAZIDE: 6.25MG)
     Route: 048
  8. HYDROCODONE ACETAM [Concomitant]
     Indication: ARTHRALGIA
  9. ALPRAZOLAM. [Concomitant]
     Active Substance: ALPRAZOLAM
     Indication: ANXIETY
     Dosage: 1 MG, AS NEEDED (HALF DURING DAY AND WHOLE ONE AT NIGHT AS NEEDED)
     Route: 048
     Dates: start: 2015
  10. PANTOPRAZOLE SODIUM. [Concomitant]
     Active Substance: PANTOPRAZOLE SODIUM
     Indication: ABDOMINAL DISCOMFORT
     Dosage: 40 MG, 1X/DAY (ONCE AT NIGHT)
     Dates: start: 2016
  11. IBRANCE [Suspect]
     Active Substance: PALBOCICLIB
     Dosage: 75 MG, UNK
     Dates: start: 20151030
  12. FEMARA [Concomitant]
     Active Substance: LETROZOLE
     Indication: BREAST CANCER METASTATIC
     Dosage: 2.5 MG, DAILY
     Route: 048
     Dates: start: 20151006
  13. SYNTHROID [Concomitant]
     Active Substance: LEVOTHYROXINE SODIUM
     Indication: HYPOTHYROIDISM
     Dosage: 50 UG, 1X/DAY
     Route: 048
     Dates: start: 1990
  14. FENTANYL. [Concomitant]
     Active Substance: FENTANYL
     Indication: PAIN
     Dosage: 25 MG, CHANGES EVERY 72 HOURS (1 PATCH FOR 72 HOURS)
     Dates: start: 201510, end: 201701
  15. FENTANYL. [Concomitant]
     Active Substance: FENTANYL
     Dosage: 12 UG, UNK
     Dates: start: 201701, end: 201701
  16. PANTOPRAZOLE SODIUM. [Concomitant]
     Active Substance: PANTOPRAZOLE SODIUM
     Indication: GASTROOESOPHAGEAL REFLUX DISEASE
  17. SYNTHROID [Concomitant]
     Active Substance: LEVOTHYROXINE SODIUM
     Indication: THYROID DISORDER
     Dosage: 50 UG, UNK
     Dates: start: 1980
  18. ALPRAZOLAM. [Concomitant]
     Active Substance: ALPRAZOLAM
     Dosage: 1 MG, UNK
     Dates: start: 20150629
  19. BISOPROLOL [Concomitant]
     Active Substance: BISOPROLOL
     Indication: HYPERTENSION
     Dosage: UNK UNK, 1X/DAY (2.5/6.25MG)
     Route: 048
  20. BISOPROLOL [Concomitant]
     Active Substance: BISOPROLOL
     Indication: DIURETIC THERAPY
  21. IBRANCE [Suspect]
     Active Substance: PALBOCICLIB
     Dosage: 75 MG, DAILY
     Route: 048
     Dates: start: 20151208
  22. ALPRAZOLAM. [Concomitant]
     Active Substance: ALPRAZOLAM
     Indication: NERVOUSNESS
     Dosage: UNK (ONE HALF TABLET TO 1 TABLET/3 TIMES A DAY AS NEEDED)
     Route: 048
     Dates: start: 2015
  23. IBRANCE [Suspect]
     Active Substance: PALBOCICLIB
     Indication: BREAST CANCER METASTATIC
     Dosage: 75 MG, CYCLIC (21 DAYS THEN 7 DAYS OFF)
     Route: 048
     Dates: start: 20151006, end: 20161010
  24. IBRANCE [Suspect]
     Active Substance: PALBOCICLIB
     Dosage: 100 MG, CYCLIC (ONCE A DAY FOR 21 DAYS AND THEN 7 DAYS OFF)
     Route: 048
     Dates: start: 20151103
  25. IBRANCE [Suspect]
     Active Substance: PALBOCICLIB
     Dosage: 75 MG, CYCLIC (FOR 21 DAYS )
     Route: 048
     Dates: start: 2015, end: 201612
  26. COENZYME Q10 [Concomitant]
     Active Substance: UBIDECARENONE
     Indication: BLOOD CHOLESTEROL
     Dosage: 100 MG, 1X/DAY
     Route: 048

REACTIONS (9)
  - White blood cell count decreased [Recovered/Resolved]
  - Photophobia [Not Recovered/Not Resolved]
  - Oropharyngeal pain [Recovered/Resolved]
  - Vision blurred [Unknown]
  - Cataract [Recovered/Resolved]
  - Throat irritation [Recovered/Resolved]
  - Eructation [Recovered/Resolved]
  - Fatigue [Not Recovered/Not Resolved]
  - Asthenia [Recovering/Resolving]

NARRATIVE: CASE EVENT DATE: 2015
